FAERS Safety Report 8967972 (Version 1)
Quarter: 2012Q4

REPORT INFORMATION
  Report Type: 
  Country: US (occurrence: US)
  Receive Date: 20121218
  Receipt Date: 20121218
  Transmission Date: 20130627
  Serious: Yes (Death, Hospitalization, Other)
  Sender: FDA-Public Use
  Company Number: US-BAXTER-2012BAX026591

PATIENT
  Age: 88 Year
  Sex: Male

DRUGS (3)
  1. DIANEAL LOW CALCIUM [Suspect]
     Indication: PERITONEAL DIALYSIS
     Route: 033
     Dates: end: 20121129
  2. DIANEAL LOW CALCIUM [Suspect]
     Indication: PERITONEAL DIALYSIS
     Route: 033
     Dates: end: 20121129
  3. DIANEAL LOW CALCIUM [Suspect]
     Indication: PERITONEAL DIALYSIS
     Route: 033
     Dates: end: 20121129

REACTIONS (8)
  - Staphylococcal infection [Fatal]
  - Gastrointestinal haemorrhage [Unknown]
  - Fall [Unknown]
  - Decubitus ulcer [Unknown]
  - Pneumonia [Unknown]
  - Brain neoplasm [Unknown]
  - General physical health deterioration [Unknown]
  - Wound infection [Unknown]
